FAERS Safety Report 4337846-4 (Version None)
Quarter: 2004Q1

REPORT INFORMATION
  Report Type: 
  Country: None (occurrence: None)
  Receive Date: 20040326
  Receipt Date: 20031117
  Transmission Date: 20041129
  Serious: Yes (Hospitalization)
  Sender: FDA-Public Use
  Company Number: 2003UW12689

PATIENT
  Age: 66 Year
  Sex: Female
  Weight: 91.173 kg

DRUGS (11)
  1. ZESTRIL [Suspect]
     Indication: HYPERTENSION
     Dosage: 20 MG DAILY PO
     Route: 048
  2. ZESTRIL [Suspect]
     Dosage: 10 MG DAILY PO
     Route: 048
     Dates: start: 20030827
  3. SYNTHROID [Concomitant]
  4. HYDROCHLOROTHIAZIDE WITH TRIAMTERNE [Concomitant]
  5. PRILOSEC [Concomitant]
  6. TYLENOL (CAPLET) [Concomitant]
  7. ZETIA [Concomitant]
  8. ALLOPURINOL [Concomitant]
  9. MAGNESIUM OXIDE [Concomitant]
  10. TYROSINE KINASE INHIBTOR [Concomitant]
  11. POTASSIUM PHOSPHATES [Concomitant]

REACTIONS (1)
  - ORTHOSTATIC HYPOTENSION [None]
